FAERS Safety Report 5884421-6 (Version None)
Quarter: 2008Q3

REPORT INFORMATION
  Report Type: 
  Country: None (occurrence: None)
  Receive Date: 20080915
  Receipt Date: 20080903
  Transmission Date: 20090109
  Serious: Yes (Other)
  Sender: FDA-Public Use
  Company Number: GB-PFIZER INC-2008073888

PATIENT
  Age: 47 Year
  Sex: Female

DRUGS (3)
  1. SPIRONOLACTONE [Suspect]
     Indication: HYPERALDOSTERONISM
     Route: 048
     Dates: start: 20080813, end: 20080816
  2. BENDROFLUMETHIAZIDE [Concomitant]
     Route: 048
     Dates: start: 20071001, end: 20080201
  3. BENDROFLUMETHIAZIDE [Concomitant]
     Route: 048
     Dates: start: 20080201

REACTIONS (3)
  - DIARRHOEA [None]
  - IMPAIRED DRIVING ABILITY [None]
  - SOMNOLENCE [None]
